FAERS Safety Report 25431940 (Version 2)
Quarter: 2025Q3

REPORT INFORMATION
  Report Type: Spontaneous
  Country: US (occurrence: US)
  Receive Date: 20250613
  Receipt Date: 20250715
  Transmission Date: 20251021
  Serious: Yes (Hospitalization)
  Sender: RADIUS PHARM
  Company Number: US-RADIUS HEALTH INC.-US-RADIUS-25049550

PATIENT
  Sex: Female

DRUGS (2)
  1. TYMLOS [Suspect]
     Active Substance: ABALOPARATIDE
     Indication: Senile osteoporosis
     Dosage: 80 MICROGRAM, QD
     Route: 058
     Dates: start: 202308
  2. BENLYSTA [Concomitant]
     Active Substance: BELIMUMAB
     Indication: Product used for unknown indication
     Route: 065

REACTIONS (3)
  - Pneumonia aspiration [Unknown]
  - Hospitalisation [Unknown]
  - Emergency care [Unknown]

NARRATIVE: CASE EVENT DATE: 20250101
